FAERS Safety Report 8305857 (Version 4)
Quarter: 2015Q4

REPORT INFORMATION
  Report Type: Spontaneous
  Country: CA (occurrence: CA)
  Receive Date: 20111221
  Receipt Date: 20151125
  Transmission Date: 20160305
  Serious: Yes (Other)
  Sender: FDA-Public Use
  Company Number: CA-ROCHE-1023152

PATIENT
  Age: 49 Year
  Sex: Female

DRUGS (5)
  1. ALVESCO [Concomitant]
     Active Substance: CICLESONIDE
  2. SYMBICORT [Concomitant]
     Active Substance: BUDESONIDE\FORMOTEROL FUMARATE DIHYDRATE
  3. XOLAIR [Suspect]
     Active Substance: OMALIZUMAB
     Indication: ASTHMA
     Route: 058
     Dates: start: 20080625
  4. VENTOLIN [Concomitant]
     Active Substance: ALBUTEROL SULFATE
  5. AVAMYS [Concomitant]
     Active Substance: FLUTICASONE FUROATE

REACTIONS (6)
  - Road traffic accident [Unknown]
  - Asthma [Unknown]
  - Middle insomnia [Unknown]
  - Pain [Unknown]
  - Forced vital capacity decreased [Unknown]
  - Forced expiratory volume decreased [Unknown]

NARRATIVE: CASE EVENT DATE: 201011
